FAERS Safety Report 17117486 (Version 3)
Quarter: 2020Q2

REPORT INFORMATION
  Report Type: Report from Study
  Country: SK (occurrence: SK)
  Receive Date: 20191205
  Receipt Date: 20200506
  Transmission Date: 20200713
  Serious: Yes (Other)
  Sender: FDA-Public Use
  Company Number: PHHY2014SK071028

PATIENT
  Age: 25 Year
  Sex: Male

DRUGS (3)
  1. GILENYA [Suspect]
     Active Substance: FINGOLIMOD HYDROCHLORIDE
     Indication: MULTIPLE SCLEROSIS
     Dosage: UNK UNK, QD
     Route: 048
     Dates: start: 20130116, end: 20131029
  2. GILENYA [Suspect]
     Active Substance: FINGOLIMOD HYDROCHLORIDE
     Dosage: UNK UNK, QD
     Route: 048
     Dates: start: 20151102, end: 20170427
  3. GILENYA [Suspect]
     Active Substance: FINGOLIMOD HYDROCHLORIDE
     Dosage: UNK UNK, QD
     Route: 048
     Dates: start: 20131117, end: 20150930

REACTIONS (10)
  - Liver disorder [Recovered/Resolved]
  - Dyspnoea [Recovered/Resolved]
  - White blood cell count decreased [Unknown]
  - Leukopenia [Recovered/Resolved]
  - Leukopenia [Recovered/Resolved]
  - Aspartate aminotransferase increased [Recovered/Resolved]
  - Alanine aminotransferase decreased [Unknown]
  - Liver disorder [Recovered/Resolved]
  - Leukopenia [Recovered/Resolved]
  - Gamma-glutamyltransferase increased [Unknown]

NARRATIVE: CASE EVENT DATE: 20140205
